FAERS Safety Report 12091702 (Version 1)
Quarter: 2016Q1

REPORT INFORMATION
  Report Type: Spontaneous
  Country: GB (occurrence: GB)
  Receive Date: 20160218
  Receipt Date: 20160218
  Transmission Date: 20160526
  Serious: Yes (Hospitalization, Other)
  Sender: FDA-Public Use
  Company Number: GB-BAUSCH-BL-2016-003793

PATIENT
  Age: 41 Year
  Sex: Male

DRUGS (2)
  1. TRIENTINE [Suspect]
     Active Substance: TRIENTINE
     Indication: HEPATO-LENTICULAR DEGENERATION
     Route: 065
  2. TRIENTINE [Suspect]
     Active Substance: TRIENTINE
     Dosage: 200 TABLETS OF 300 MG TRIENTINE (TOTAL OF 60 G)
     Route: 065

REACTIONS (9)
  - Dizziness [Recovered/Resolved]
  - Acute kidney injury [Unknown]
  - Suicidal ideation [Unknown]
  - Thrombocytopenia [Unknown]
  - Expired product administered [Unknown]
  - Nausea [Unknown]
  - Hypophosphataemia [Unknown]
  - Overdose [Unknown]
  - Vomiting [Recovered/Resolved]
